FAERS Safety Report 11745144 (Version 1)
Quarter: 2015Q4

REPORT INFORMATION
  Report Type: Spontaneous
  Country: TN (occurrence: TN)
  Receive Date: 20151117
  Receipt Date: 20151117
  Transmission Date: 20160304
  Serious: Yes (Life-Threatening, Hospitalization)
  Sender: FDA-Public Use
  Company Number: TN-ROCHE-1661169

PATIENT
  Sex: Female

DRUGS (1)
  1. XELODA [Suspect]
     Active Substance: CAPECITABINE
     Indication: BREAST CANCER
     Route: 048

REACTIONS (4)
  - Mucosal inflammation [Unknown]
  - Skin hyperpigmentation [Unknown]
  - Electrolyte imbalance [Unknown]
  - Febrile neutropenia [Unknown]
